FAERS Safety Report 7560654-8 (Version None)
Quarter: 2011Q2

REPORT INFORMATION
  Report Type: 
  Country: None (occurrence: None)
  Receive Date: 20110621
  Receipt Date: 20110614
  Transmission Date: 20111010
  Serious: Yes (Other)
  Sender: FDA-Public Use
  Company Number: US-PFIZER INC-2011131255

PATIENT
  Age: 48 Year
  Sex: Female

DRUGS (3)
  1. XANAX [Concomitant]
     Dosage: UNK
  2. ZOLOFT [Suspect]
     Dosage: UNK
  3. SYNTHROID [Concomitant]
     Dosage: UNK

REACTIONS (2)
  - WEIGHT DECREASED [None]
  - EXTRAPYRAMIDAL DISORDER [None]
